FAERS Safety Report 21253566 (Version 1)
Quarter: 2022Q3

REPORT INFORMATION
  Report Type: Spontaneous
  Country: US (occurrence: None)
  Receive Date: 20220824
  Receipt Date: 20220824
  Transmission Date: 20221026
  Serious: Yes (Hospitalization)
  Sender: FDA-Public Use
  Company Number: None

PATIENT
  Age: 67 Year
  Sex: Male
  Weight: 97.52 kg

DRUGS (1)
  1. SULFAMETHOXAZOLE\TRIMETHOPRIM [Suspect]
     Active Substance: SULFAMETHOXAZOLE\TRIMETHOPRIM
     Indication: Infection
     Dosage: FREQUENCY : TWICE A DAY;?
     Route: 048
     Dates: start: 20220330, end: 20220413

REACTIONS (11)
  - Rash [None]
  - Nausea [None]
  - Headache [None]
  - Chills [None]
  - Feeling hot [None]
  - Abdominal discomfort [None]
  - Cough [None]
  - Pyrexia [None]
  - Acute kidney injury [None]
  - Hepatic enzyme increased [None]
  - Dehydration [None]

NARRATIVE: CASE EVENT DATE: 20220413
